FAERS Safety Report 17129194 (Version 1)
Quarter: 2019Q4

REPORT INFORMATION
  Report Type: Spontaneous
  Country: US (occurrence: US)
  Receive Date: 20191209
  Receipt Date: 20191209
  Transmission Date: 20200122
  Serious: Yes (Death, Other)
  Sender: FDA-Public Use
  Company Number: US-JNJFOC-20191204390

PATIENT
  Age: 57 Year
  Sex: Male

DRUGS (1)
  1. DURAGESIC [Suspect]
     Active Substance: FENTANYL
     Indication: PRODUCT USED FOR UNKNOWN INDICATION
     Route: 065

REACTIONS (7)
  - Electrocardiogram QT prolonged [Unknown]
  - Coma [Unknown]
  - Metabolic acidosis [Unknown]
  - Respiratory depression [Unknown]
  - Hypotension [Unknown]
  - Bradycardia [Unknown]
  - Toxicity to various agents [Fatal]
